FAERS Safety Report 12090545 (Version 2)
Quarter: 2016Q2

REPORT INFORMATION
  Report Type: Spontaneous
  Country: IL (occurrence: IL)
  Receive Date: 20160218
  Receipt Date: 20160405
  Transmission Date: 20160815
  Serious: Yes (Other)
  Sender: FDA-Public Use
  Company Number: IL-JNJFOC-20160209476

PATIENT
  Age: 37 Year
  Sex: Male

DRUGS (3)
  1. REMICADE [Suspect]
     Active Substance: INFLIXIMAB
     Indication: JUVENILE IDIOPATHIC ARTHRITIS
     Route: 042
     Dates: start: 2004
  2. REMICADE [Suspect]
     Active Substance: INFLIXIMAB
     Indication: JUVENILE IDIOPATHIC ARTHRITIS
     Route: 042
     Dates: start: 200710
  3. REMICADE [Suspect]
     Active Substance: INFLIXIMAB
     Indication: JUVENILE IDIOPATHIC ARTHRITIS
     Route: 042
     Dates: start: 2015

REACTIONS (9)
  - Spinal fusion surgery [Unknown]
  - Spondyloarthropathy [Unknown]
  - Drug ineffective [Unknown]
  - Pulmonary embolism [Unknown]
  - Ankylosing spondylitis [Unknown]
  - Spinal column stenosis [Unknown]
  - Off label use [Unknown]
  - Product use issue [Unknown]
  - Juvenile idiopathic arthritis [Unknown]
